FAERS Safety Report 11397384 (Version 1)
Quarter: 2015Q3

REPORT INFORMATION
  Report Type: Spontaneous
  Country: US (occurrence: US)
  Receive Date: 20150819
  Receipt Date: 20150819
  Transmission Date: 20151125
  Serious: Yes (Hospitalization, Other)
  Sender: FDA-Public Use
  Company Number: US-ASTRAZENECA-2015SE78843

PATIENT
  Sex: Female
  Weight: 74.8 kg

DRUGS (11)
  1. SALINE SOLUTION [Concomitant]
     Active Substance: SODIUM CHLORIDE
     Indication: SINUS HEADACHE
     Dosage: AS REQUIRED
     Route: 045
  2. NEBULIZER [Suspect]
     Active Substance: DEVICE
     Route: 065
  3. SPIRIVA [Concomitant]
     Active Substance: TIOTROPIUM BROMIDE MONOHYDRATE
     Indication: PNEUMONIA
     Dosage: 18 MCG, DAILY
  4. DALIRESP [Suspect]
     Active Substance: ROFLUMILAST
     Indication: CHRONIC OBSTRUCTIVE PULMONARY DISEASE
     Route: 048
  5. ADVAIR HFA [Concomitant]
     Active Substance: FLUTICASONE PROPIONATE\SALMETEROL XINAFOATE
     Dosage: 500/50, TWO TIMES DAILY
  6. FLUTICASONE [Concomitant]
     Active Substance: FLUTICASONE\FLUTICASONE PROPIONATE
     Indication: MULTIPLE ALLERGIES
     Dosage: 50MCG, ONE SPRAY PER NOSTRIL TWICE DAILY
     Route: 045
  7. ALENDRONATE SODIUM. [Concomitant]
     Active Substance: ALENDRONATE SODIUM
     Indication: OSTEOPOROSIS
     Dosage: 70MG, ONCE A WEEK
  8. PROAIR HFA [Concomitant]
     Active Substance: ALBUTEROL SULFATE
     Dosage: AS REQUIRED
  9. SINGULAIR [Concomitant]
     Active Substance: MONTELUKAST SODIUM
  10. SIMVASTATIN. [Concomitant]
     Active Substance: SIMVASTATIN
     Indication: BLOOD CHOLESTEROL INCREASED
  11. ELAVIL [Concomitant]
     Active Substance: AMITRIPTYLINE HYDROCHLORIDE
     Indication: DEPRESSION
     Dosage: (GENERIC), 50 MG, DAILY

REACTIONS (10)
  - Ear disorder [Unknown]
  - Condition aggravated [Unknown]
  - Cardiac disorder [Unknown]
  - Hypersensitivity [Unknown]
  - Hypoacusis [Unknown]
  - Nausea [Unknown]
  - Sinus headache [Unknown]
  - Vomiting [Unknown]
  - Ear pain [Unknown]
  - Dyspnoea [Unknown]
